FAERS Safety Report 5749069-2 (Version None)
Quarter: 2008Q2

REPORT INFORMATION
  Report Type: 
  Country: None (occurrence: None)
  Receive Date: 20080527
  Receipt Date: 20080516
  Transmission Date: 20081010
  Serious: Yes (Life-Threatening)
  Sender: FDA-Public Use
  Company Number: US-SANOFI-SYNTHELABO-A03200706561

PATIENT
  Sex: Male
  Weight: 56.2 kg

DRUGS (5)
  1. FLAGYL [Concomitant]
     Indication: DRUG USE FOR UNKNOWN INDICATION
     Dosage: UNK
     Route: 065
  2. VALTREX [Concomitant]
     Indication: DRUG USE FOR UNKNOWN INDICATION
     Dosage: UNK
     Route: 065
     Dates: start: 20060101, end: 20080101
  3. ZITHROMAX [Concomitant]
     Indication: DRUG USE FOR UNKNOWN INDICATION
     Dosage: UNK
     Route: 065
  4. PLAQUENIL [Suspect]
     Indication: FIBROMYALGIA
     Route: 048
     Dates: start: 20070801, end: 20071001
  5. PLAQUENIL [Suspect]
     Indication: IMMUNODEFICIENCY
     Route: 048
     Dates: start: 20070801, end: 20071001

REACTIONS (7)
  - ABDOMINAL PAIN UPPER [None]
  - DYSPNOEA [None]
  - EYE PAIN [None]
  - ILL-DEFINED DISORDER [None]
  - INCORRECT ROUTE OF DRUG ADMINISTRATION [None]
  - PAIN [None]
  - VISION BLURRED [None]
